FAERS Safety Report 9320395 (Version 3)
Quarter: 2013Q4

REPORT INFORMATION
  Report Type: Spontaneous
  Country: US (occurrence: US)
  Receive Date: 20130530
  Receipt Date: 20131011
  Transmission Date: 20140711
  Serious: Yes (Hospitalization, Other)
  Sender: FDA-Public Use
  Company Number: US-B.I. PHARMACEUTICALS,INC./RIDGEFIELD-2013-BI-14546BP

PATIENT
  Sex: Male
  Weight: 72.57 kg

DRUGS (13)
  1. PRADAXA [Suspect]
     Indication: ATRIAL FIBRILLATION
     Dates: start: 201107, end: 20110921
  2. PRADAXA [Suspect]
     Indication: CEREBROVASCULAR ACCIDENT PROPHYLAXIS
  3. PRADAXA [Suspect]
     Indication: THROMBOSIS PROPHYLAXIS
  4. PRADAXA [Suspect]
     Indication: CORONARY ARTERY DISEASE
  5. PLAVIX [Suspect]
     Indication: CORONARY ARTERY DISEASE
     Dosage: 75 MG
     Route: 048
  6. PLAVIX [Suspect]
     Indication: ATRIAL FIBRILLATION
  7. PRAVACHOL [Concomitant]
     Dosage: 40 MG
     Route: 048
  8. CAPTOPRIL [Concomitant]
     Dosage: 150 MG
     Route: 048
  9. METOPROLOL TARTRATE [Concomitant]
     Dosage: 100 MG
     Route: 048
  10. NORVASC [Concomitant]
     Dosage: 10 MG
     Route: 048
  11. TIMOLOL [Concomitant]
     Route: 031
  12. NITROGLYCERIN [Concomitant]
  13. DIOVAN HCT [Concomitant]
     Route: 048

REACTIONS (9)
  - Upper gastrointestinal haemorrhage [Unknown]
  - Renal failure acute [Unknown]
  - Anaemia [Unknown]
  - Hyperkalaemia [Unknown]
  - Coagulopathy [Unknown]
  - Myocardial infarction [Unknown]
  - Renal haemorrhage [Unknown]
  - Respiratory failure [Unknown]
  - Pericardial haemorrhage [Recovered/Resolved]
